FAERS Safety Report 9503587 (Version 1)
Quarter: 2013Q3

REPORT INFORMATION
  Report Type: Spontaneous
  Country: DK (occurrence: DE)
  Receive Date: 20130906
  Receipt Date: 20130906
  Transmission Date: 20140515
  Serious: Yes (Other)
  Sender: FDA-Public Use
  Company Number: DE-FRI-1000048419

PATIENT
  Age: 19 Year
  Sex: Female
  Weight: 63 kg

DRUGS (2)
  1. CITALOPRAM [Suspect]
     Indication: PANIC ATTACK
     Dosage: 10 MG
     Route: 048
     Dates: start: 20130105, end: 20130128
  2. CITALOPRAM [Suspect]
     Indication: ACCIDENT
     Dosage: 20 MG
     Route: 048
     Dates: start: 20130128, end: 20130131

REACTIONS (12)
  - Anxiety [Recovering/Resolving]
  - Confusional state [Recovering/Resolving]
  - Disturbance in attention [Recovering/Resolving]
  - Heart rate increased [Recovering/Resolving]
  - Hyperhidrosis [Recovering/Resolving]
  - Memory impairment [Recovering/Resolving]
  - Mydriasis [Recovering/Resolving]
  - Palpitations [Recovering/Resolving]
  - Restlessness [Recovering/Resolving]
  - Tremor [Recovering/Resolving]
  - Visual impairment [Recovering/Resolving]
  - Palpitations [Recovering/Resolving]
